FAERS Safety Report 14146726 (Version 1)
Quarter: 2017Q4

REPORT INFORMATION
  Report Type: Spontaneous
  Country: SI (occurrence: SI)
  Receive Date: 20171031
  Receipt Date: 20171031
  Transmission Date: 20180321
  Serious: Yes (Other)
  Sender: FDA-Public Use
  Company Number: SI-AMGEN-SVNSP2017161993

PATIENT
  Age: 68 Year
  Sex: Female

DRUGS (8)
  1. NEBIVOLOL. [Concomitant]
     Active Substance: NEBIVOLOL
  2. METILPREDNISOLONE [Concomitant]
     Active Substance: METHYLPREDNISOLONE
     Dosage: UNK
     Dates: start: 2015
  3. VITAMIN D3 [Concomitant]
     Active Substance: CHOLECALCIFEROL
     Dosage: UNK
     Dates: start: 2015
  4. REPATHA [Suspect]
     Active Substance: EVOLOCUMAB
     Indication: HYPERCHOLESTEROLAEMIA
     Dosage: 140 MG, Q2WK
     Route: 058
     Dates: start: 20170823, end: 20170905
  5. CALCII CARBONAS [Concomitant]
     Dosage: UNK
     Dates: start: 2015
  6. TELMISARTAN HYDROCHLOROTHIAZIDE TEVA [Concomitant]
  7. LEVOTHYROXINE SODIUM. [Concomitant]
     Active Substance: LEVOTHYROXINE SODIUM
  8. FOLIC ACID. [Concomitant]
     Active Substance: FOLIC ACID
     Dosage: UNK
     Dates: start: 2015

REACTIONS (11)
  - Joint swelling [Unknown]
  - Nausea [Unknown]
  - Dyspepsia [Unknown]
  - Epistaxis [Unknown]
  - Diarrhoea [Unknown]
  - Rash [Unknown]
  - Arthralgia [Unknown]
  - Cough [Unknown]
  - Swelling face [Unknown]
  - Peripheral swelling [Unknown]
  - Dry mouth [Unknown]

NARRATIVE: CASE EVENT DATE: 2017
